FAERS Safety Report 4977904-4 (Version None)
Quarter: 2006Q2

REPORT INFORMATION
  Report Type: 
  Country: None (occurrence: None)
  Receive Date: 20060420
  Receipt Date: 20051031
  Transmission Date: 20061013
  Serious: Yes (Hospitalization)
  Sender: FDA-Public Use
  Company Number: DE-MERCK-0511DEU00012

PATIENT
  Age: 53 Year
  Sex: Male
  Weight: 102 kg

DRUGS (5)
  1. VIOXX [Suspect]
     Indication: ANKYLOSING SPONDYLITIS
     Route: 048
     Dates: end: 20040701
  2. VIOXX [Suspect]
     Route: 065
     Dates: start: 20040802, end: 20040809
  3. VIOXX [Suspect]
     Route: 048
     Dates: start: 20030207
  4. LEVOTHYROXINE SODIUM [Concomitant]
     Route: 048
  5. NITRENDIPINE [Concomitant]
     Route: 048

REACTIONS (24)
  - ABDOMINAL HAEMATOMA [None]
  - ACUTE MYOCARDIAL INFARCTION [None]
  - BLOOD CREATINE PHOSPHOKINASE INCREASED [None]
  - BLOOD PRESSURE INADEQUATELY CONTROLLED [None]
  - BLOOD PRESSURE INCREASED [None]
  - CORONARY ARTERY DISEASE [None]
  - DEPRESSION [None]
  - DIVERTICULUM [None]
  - DIZZINESS [None]
  - DRUG ADMINISTRATION ERROR [None]
  - FALL [None]
  - GASTRIC ULCER [None]
  - GASTRITIS EROSIVE [None]
  - GASTROINTESTINAL HAEMORRHAGE [None]
  - HAEMATOCHEZIA [None]
  - HAEMATOMA [None]
  - HELICOBACTER INFECTION [None]
  - HEPATIC STEATOSIS [None]
  - HYPERTENSION [None]
  - HYPERURICAEMIA [None]
  - HYPOTHYROIDISM [None]
  - MIXED HYPERLIPIDAEMIA [None]
  - NORMOCHROMIC NORMOCYTIC ANAEMIA [None]
  - REFLUX OESOPHAGITIS [None]
